FAERS Safety Report 14153617 (Version 1)
Quarter: 2017Q4

REPORT INFORMATION
  Report Type: Spontaneous
  Country: US (occurrence: US)
  Receive Date: 20171102
  Receipt Date: 20171102
  Transmission Date: 20180321
  Serious: No
  Sender: FDA-Public Use
  Company Number: US-SA-2017SA170785

PATIENT
  Age: 54 Year
  Sex: Female

DRUGS (2)
  1. ALIROCUMAB PREFILLED PEN [Suspect]
     Active Substance: ALIROCUMAB
     Dates: start: 201704, end: 201709
  2. PRALUENT [Suspect]
     Active Substance: ALIROCUMAB
     Route: 058
     Dates: start: 201704, end: 201709

REACTIONS (4)
  - Swelling [Unknown]
  - Visual impairment [Unknown]
  - Foot fracture [Unknown]
  - Joint swelling [Unknown]

NARRATIVE: CASE EVENT DATE: 2017
